FAERS Safety Report 14128816 (Version 1)
Quarter: 2017Q4

REPORT INFORMATION
  Report Type: Report from Study
  Country: TR (occurrence: TR)
  Receive Date: 20171026
  Receipt Date: 20171026
  Transmission Date: 20180321
  Serious: Yes (Death)
  Sender: FDA-Public Use
  Company Number: TR-ROCHE-2013882

PATIENT

DRUGS (1)
  1. ALTEPLASE. [Suspect]
     Active Substance: ALTEPLASE
     Indication: PULMONARY EMBOLISM
     Route: 065

REACTIONS (1)
  - Haemoptysis [Fatal]
